FAERS Safety Report 5936290-3 (Version None)
Quarter: 2008Q4

REPORT INFORMATION
  Report Type: 
  Country: None (occurrence: None)
  Receive Date: 20081030
  Receipt Date: 20081024
  Transmission Date: 20090506
  Serious: Yes (Death)
  Sender: FDA-Public Use
  Company Number: US-PURDUE-USA_2008_0035614

PATIENT
  Age: 70 Year
  Sex: Male

DRUGS (2)
  1. OXYCONTIN [Suspect]
     Indication: CANCER PAIN
     Dosage: 160 MG, DAILY
  2. OXYIR [Suspect]
     Indication: CANCER PAIN
     Dosage: 55 MG, DAILY

REACTIONS (2)
  - MALIGNANT NEOPLASM PROGRESSION [None]
  - TRANSFUSION REACTION [None]
